FAERS Safety Report 24553753 (Version 1)
Quarter: 2024Q4

REPORT INFORMATION
  Report Type: Report from Study
  Country: US (occurrence: US)
  Receive Date: 20241028
  Receipt Date: 20241028
  Transmission Date: 20250115
  Serious: No
  Sender: ROCHE
  Company Number: US-ROCHE-10000038304

PATIENT
  Sex: Male
  Weight: 35.3 kg

DRUGS (1)
  1. SOMATROPIN [Suspect]
     Active Substance: SOMATROPIN
     Indication: Growth hormone deficiency
     Dosage: INJECT 1.3 MG 10 MG/2 ML (5 MG/ML) PEN  INTO THE ?SKIN.
     Route: 058

REACTIONS (1)
  - Hypotension [Unknown]
